FAERS Safety Report 23110446 (Version 1)
Quarter: 2023Q4

REPORT INFORMATION
  Report Type: Spontaneous
  Country: US (occurrence: None)
  Receive Date: 20231024
  Receipt Date: 20231024
  Transmission Date: 20240110
  Serious: No
  Sender: FDA-Public Use
  Company Number: None

PATIENT
  Sex: Male

DRUGS (1)
  1. SKYRIZI [Suspect]
     Active Substance: RISANKIZUMAB-RZAA
     Indication: Crohn^s disease
     Dosage: OTHER FREQUENCY : EVERY8WEEKS; ?STRENGTH: 350MG/2.4M?DOSE: 350
     Route: 058
     Dates: start: 202302

REACTIONS (2)
  - Therapeutic product effect decreased [None]
  - Illness [None]
